FAERS Safety Report 22115546 (Version 1)
Quarter: 2023Q1

REPORT INFORMATION
  Report Type: Spontaneous
  Country: US (occurrence: None)
  Receive Date: 20230319
  Receipt Date: 20230319
  Transmission Date: 20230418
  Serious: Yes (Hospitalization)
  Sender: FDA-Public Use
  Company Number: None

PATIENT
  Sex: Female

DRUGS (11)
  1. NUCALA [Suspect]
     Active Substance: MEPOLIZUMAB
  2. ATORVASTATIN [Concomitant]
     Active Substance: ATORVASTATIN
  3. AZELASTINE SPR [Concomitant]
  4. CELECOXIB CAP [Concomitant]
  5. DICLOFENAC [Concomitant]
     Active Substance: DICLOFENAC
  6. HUMALOG KWIK INJ [Concomitant]
  7. LOSARTAN POT TAB [Concomitant]
  8. PANTOPRAZOLE TAB [Concomitant]
  9. PROAIR HFA AER [Concomitant]
  10. SPIRIVA CAP HANDIHLR [Concomitant]
  11. VICTOZA INJ [Concomitant]

REACTIONS (3)
  - Gastrointestinal disorder [None]
  - Asthma [None]
  - Impaired quality of life [None]
